FAERS Safety Report 8611900-0 (Version None)
Quarter: 2012Q3

REPORT INFORMATION
  Report Type: 
  Country: None (occurrence: None)
  Receive Date: 20120822
  Receipt Date: 20120816
  Transmission Date: 20120928
  Serious: Yes (Other)
  Sender: FDA-Public Use
  Company Number: PHHY2011GB37063

PATIENT
  Age: 89 Year
  Sex: Male
  Weight: 54 kg

DRUGS (9)
  1. CODEINE PHOSPHATE [Concomitant]
     Indication: ANALGESIC THERAPY
     Dosage: 60 MG, UNK
  2. ACETAMINOPHEN [Interacting]
     Indication: ANALGESIC THERAPY
     Dosage: 1 G, UNK
  3. ILOPROST [Interacting]
     Indication: PERIPHERAL ISCHAEMIA
     Dosage: 50 UG, QD
     Route: 042
  4. WARFARIN SODIUM [Suspect]
     Indication: DEEP VEIN THROMBOSIS
     Dosage: 3 MG, UNK
     Route: 048
  5. CALCIUM [Concomitant]
     Dosage: 1 DF, BID
  6. FUROSEMIDE [Concomitant]
     Dosage: 40 MG, QD
  7. ALFACALCIDOL [Concomitant]
     Dosage: 250 NG, TID
  8. ERGOCALCIFEROL [Concomitant]
     Dosage: 1 DF, UNK
  9. TIMOLOL MALEATE [Concomitant]
     Indication: GLAUCOMA
     Route: 047

REACTIONS (2)
  - INTERNATIONAL NORMALISED RATIO INCREASED [None]
  - DRUG INTERACTION [None]
